FAERS Safety Report 5301016-3 (Version None)
Quarter: 2007Q2

REPORT INFORMATION
  Report Type: 
  Country: None (occurrence: None)
  Receive Date: 20070418
  Receipt Date: 20061204
  Transmission Date: 20071010
  Serious: No
  Sender: FDA-Public Use
  Company Number: US-AMGEN-KDL192989

PATIENT
  Sex: Female
  Weight: 60 kg

DRUGS (6)
  1. SENSIPAR [Suspect]
     Indication: HYPERPARATHYROIDISM SECONDARY
     Route: 048
     Dates: start: 20060329
  2. FOSRENOL [Concomitant]
     Route: 065
  3. ALEVE [Concomitant]
     Route: 065
     Dates: start: 20060406
  4. ATENOLOL [Concomitant]
     Route: 065
     Dates: start: 20060331
  5. NEPHRO-CAPS [Concomitant]
     Route: 065
     Dates: start: 20060316
  6. KAYEXALATE [Concomitant]
     Route: 065
     Dates: start: 20060517

REACTIONS (3)
  - ALOPECIA [None]
  - DIARRHOEA [None]
  - NAUSEA [None]
